FAERS Safety Report 6685199-9 (Version None)
Quarter: 2010Q2

REPORT INFORMATION
  Report Type: 
  Country: None (occurrence: None)
  Receive Date: 20100416
  Receipt Date: 20100408
  Transmission Date: 20101027
  Serious: Yes (Hospitalization, Other)
  Sender: FDA-Public Use
  Company Number: US-ABBOTT-10P-163-0637004-00

PATIENT
  Sex: Male
  Weight: 88.53 kg

DRUGS (8)
  1. HUMIRA [Suspect]
     Indication: CROHN'S DISEASE
     Dates: start: 20081201
  2. HUMIRA [Suspect]
     Dates: start: 20090101, end: 20090101
  3. HUMIRA [Suspect]
     Dates: start: 20090101, end: 20100301
  4. HUMIRA [Suspect]
     Dates: start: 20100301
  5. HUMIRA [Suspect]
  6. HUMIRA [Suspect]
  7. PREDNISONE [Suspect]
     Indication: CROHN'S DISEASE
     Dosage: UNKNOWN
  8. AVALIDE [Concomitant]
     Indication: HYPERTENSION

REACTIONS (3)
  - ARTHRALGIA [None]
  - BONE EROSION [None]
  - CROHN'S DISEASE [None]
